FAERS Safety Report 18549323 (Version 1)
Quarter: 2020Q4

REPORT INFORMATION
  Report Type: Spontaneous
  Country: DE (occurrence: DE)
  Receive Date: 20201126
  Receipt Date: 20201126
  Transmission Date: 20210114
  Serious: Yes (Other)
  Sender: FDA-Public Use
  Company Number: DE-TEVA-2020-DE-1850472

PATIENT
  Age: 74 Year
  Sex: Female
  Weight: 70 kg

DRUGS (2)
  1. EZETIMIB-RATIOPHARM 10 MG TABLETTEN [Suspect]
     Active Substance: EZETIMIBE
     Dosage: 10 MILLIGRAM DAILY;
     Dates: start: 202009, end: 20201102
  2. L-THYROXIN 100 [Concomitant]
     Active Substance: LEVOTHYROXINE SODIUM

REACTIONS (3)
  - C-reactive protein increased [Recovered/Resolved]
  - Muscle disorder [Recovered/Resolved]
  - Gastrointestinal disorder [Recovered/Resolved]

NARRATIVE: CASE EVENT DATE: 202010
